FAERS Safety Report 5814258-5 (Version None)
Quarter: 2008Q3

REPORT INFORMATION
  Report Type: 
  Country: None (occurrence: None)
  Receive Date: 20080717
  Receipt Date: 20080708
  Transmission Date: 20090109
  Serious: Yes (Hospitalization, Other)
  Sender: FDA-Public Use
  Company Number: US-ELI_LILLY_AND_COMPANY-US200807001435

PATIENT
  Sex: Male

DRUGS (2)
  1. HUMULIN R [Suspect]
     Dates: start: 20030101
  2. LANTUS [Concomitant]

REACTIONS (21)
  - ABASIA [None]
  - ANGINA PECTORIS [None]
  - ANXIETY [None]
  - BLOOD BLISTER [None]
  - BLOOD GLUCOSE INCREASED [None]
  - BRONCHITIS CHRONIC [None]
  - CEREBROVASCULAR ACCIDENT [None]
  - CONTUSION [None]
  - DIZZINESS [None]
  - DRUG INEFFECTIVE [None]
  - DYSPHONIA [None]
  - DYSPNOEA [None]
  - HEADACHE [None]
  - HEMIANOPIA [None]
  - LIMB INJURY [None]
  - LISTLESS [None]
  - NASAL CONGESTION [None]
  - RENAL DISORDER [None]
  - SINUS DISORDER [None]
  - SKIN EXFOLIATION [None]
  - THROMBOSIS [None]
